FAERS Safety Report 22652944 (Version 3)
Quarter: 2023Q4

REPORT INFORMATION
  Report Type: Spontaneous
  Country: US (occurrence: US)
  Receive Date: 20230629
  Receipt Date: 20231114
  Transmission Date: 20240109
  Serious: Yes (Hospitalization, Other)
  Sender: FDA-Public Use
  Company Number: US-ABBVIE-5308966

PATIENT
  Age: 76 Year
  Sex: Male

DRUGS (5)
  1. VRAYLAR [Suspect]
     Active Substance: CARIPRAZINE
     Indication: Antipsychotic therapy
     Route: 048
  2. INGREZZA [Suspect]
     Active Substance: VALBENAZINE
     Indication: Tardive dyskinesia
     Route: 048
     Dates: start: 20210515, end: 20210726
  3. INGREZZA [Suspect]
     Active Substance: VALBENAZINE
     Indication: Tardive dyskinesia
     Route: 048
     Dates: start: 20210727, end: 20230314
  4. INGREZZA [Suspect]
     Active Substance: VALBENAZINE
     Indication: Tardive dyskinesia
     Route: 048
     Dates: start: 20230426
  5. ELIQUIS [Suspect]
     Active Substance: APIXABAN
     Indication: Thrombosis
     Route: 065
     Dates: start: 2016, end: 202209

REACTIONS (3)
  - Cerebral haemorrhage [Recovering/Resolving]
  - Tremor [Unknown]
  - Cardiac device implantation [Unknown]

NARRATIVE: CASE EVENT DATE: 20220901
